FAERS Safety Report 5251871-0 (Version None)
Quarter: 2007Q1

REPORT INFORMATION
  Report Type: 
  Country: None (occurrence: None)
  Receive Date: 20070228
  Receipt Date: 20070216
  Transmission Date: 20070707
  Serious: Yes (Other)
  Sender: FDA-Public Use
  Company Number: JP-PFIZER INC-2006072124

PATIENT
  Age: 72 Year
  Sex: Male

DRUGS (2)
  1. LIPITOR [Suspect]
     Indication: ILL-DEFINED DISORDER
     Dosage: DAILY DOSE:10MG-FREQ:DAILY
     Route: 048
     Dates: start: 20060301, end: 20060301
  2. HARNAL [Suspect]
     Indication: ILL-DEFINED DISORDER
     Dosage: DAILY DOSE:.2MG-FREQ:DAY
     Route: 048

REACTIONS (1)
  - DERMATOMYOSITIS [None]
